FAERS Safety Report 7628861 (Version 3)
Quarter: 2014Q1

REPORT INFORMATION
  Report Type: Spontaneous
  Country: US (occurrence: US)
  Receive Date: 20101014
  Receipt Date: 20140321
  Transmission Date: 20141002
  Serious: Yes (Hospitalization)
  Sender: FDA-Public Use
  Company Number: US-US-EMD SERONO, INC.-7020021

PATIENT
  Age: 43 Year
  Sex: Male
  Weight: 93 kg

DRUGS (4)
  1. REBIF [Suspect]
     Indication: MULTIPLE SCLEROSIS
     Route: 058
     Dates: start: 20070117
  2. NEURONTIN [Concomitant]
     Indication: NEURALGIA
  3. PREVACID [Concomitant]
     Indication: GASTROOESOPHAGEAL REFLUX DISEASE
  4. PHENERGAN [Concomitant]
     Indication: NAUSEA

REACTIONS (1)
  - Intervertebral disc protrusion [Recovering/Resolving]
